FAERS Safety Report 10369928 (Version 2)
Quarter: 2014Q3

REPORT INFORMATION
  Report Type: Report from Study
  Country: US (occurrence: US)
  Receive Date: 20140808
  Receipt Date: 20140827
  Transmission Date: 20150326
  Serious: Yes (Other)
  Sender: FDA-Public Use
  Company Number: US-BIOGENIDEC-2014BI077239

PATIENT
  Sex: Female

DRUGS (1)
  1. AVONEX [Suspect]
     Active Substance: INTERFERON BETA-1A
     Indication: MULTIPLE SCLEROSIS
     Route: 030
     Dates: start: 20121203, end: 20130701

REACTIONS (3)
  - Transient ischaemic attack [Not Recovered/Not Resolved]
  - Cardiac perforation [Not Recovered/Not Resolved]
  - Hypoaesthesia [Recovered/Resolved]
